FAERS Safety Report 5165338-1 (Version None)
Quarter: 2006Q4

REPORT INFORMATION
  Report Type: 
  Country: None (occurrence: None)
  Receive Date: 20061206
  Receipt Date: 20061127
  Transmission Date: 20070319
  Serious: Yes (Hospitalization)
  Sender: FDA-Public Use
  Company Number: IT-BRISTOL-MYERS SQUIBB COMPANY-13593488

PATIENT
  Sex: Male

DRUGS (1)
  1. CISPLATIN [Suspect]

REACTIONS (1)
  - PULMONARY EMBOLISM [None]
